FAERS Safety Report 10152211 (Version 1)
Quarter: 2014Q2

REPORT INFORMATION
  Report Type: Spontaneous
  Country: US (occurrence: None)
  Receive Date: 20140502
  Receipt Date: 20140502
  Transmission Date: 20141212
  Serious: No
  Sender: FDA-Public Use
  Company Number: None

PATIENT
  Age: 07 Year
  Sex: Male
  Weight: 47.17 kg

DRUGS (1)
  1. CONCERTA [Suspect]
     Indication: ATTENTION DEFICIT/HYPERACTIVITY DISORDER
     Dosage: 30
     Route: 048
     Dates: start: 20140410, end: 20140501

REACTIONS (4)
  - Mood swings [None]
  - Product substitution issue [None]
  - Drug effect decreased [None]
  - Abnormal behaviour [None]
